FAERS Safety Report 22284860 (Version 8)
Quarter: 2025Q1

REPORT INFORMATION
  Report Type: Report from Study
  Country: CA (occurrence: CA)
  Receive Date: 20230504
  Receipt Date: 20250328
  Transmission Date: 20250409
  Serious: Yes (Other)
  Sender: TAKEDA
  Company Number: CA-TAKEDA-2021TUS078505

PATIENT
  Age: 44 Year
  Sex: Female

DRUGS (11)
  1. VEDOLIZUMAB [Suspect]
     Active Substance: VEDOLIZUMAB
     Indication: Colitis ulcerative
  2. VEDOLIZUMAB [Suspect]
     Active Substance: VEDOLIZUMAB
     Indication: Colitis microscopic
  3. VEDOLIZUMAB [Suspect]
     Active Substance: VEDOLIZUMAB
  4. VEDOLIZUMAB [Suspect]
     Active Substance: VEDOLIZUMAB
  5. VEDOLIZUMAB [Suspect]
     Active Substance: VEDOLIZUMAB
  6. VEDOLIZUMAB [Suspect]
     Active Substance: VEDOLIZUMAB
  7. VEDOLIZUMAB [Suspect]
     Active Substance: VEDOLIZUMAB
  8. VEDOLIZUMAB [Suspect]
     Active Substance: VEDOLIZUMAB
  9. BUDESONIDE [Concomitant]
     Active Substance: BUDESONIDE
     Indication: Colitis microscopic
     Dosage: 9 MILLIGRAM, QD
     Dates: start: 20240109, end: 20240113
  10. COLESTID [Concomitant]
     Active Substance: COLESTIPOL HYDROCHLORIDE
  11. ENTOCORT [Concomitant]
     Active Substance: BUDESONIDE
     Indication: Colitis microscopic
     Dosage: 9 MILLIGRAM, QD

REACTIONS (6)
  - Colitis microscopic [Not Recovered/Not Resolved]
  - Therapeutic reaction time decreased [Recovered/Resolved]
  - Dizziness [Recovered/Resolved]
  - Headache [Unknown]
  - Diarrhoea [Unknown]
  - Product use in unapproved indication [Unknown]

NARRATIVE: CASE EVENT DATE: 20211123
